FAERS Safety Report 16861555 (Version 3)
Quarter: 2020Q1

REPORT INFORMATION
  Report Type: Spontaneous
  Country: HU (occurrence: HU)
  Receive Date: 20190927
  Receipt Date: 20200304
  Transmission Date: 20200409
  Serious: Yes (Death, Hospitalization, Other)
  Sender: FDA-Public Use
  Company Number: PHHY2019HU222358

PATIENT
  Age: 80 Year
  Sex: Female

DRUGS (11)
  1. L-THYROXIN [Concomitant]
     Active Substance: LEVOTHYROXINE SODIUM
     Indication: PRODUCT USED FOR UNKNOWN INDICATION
     Dosage: UNK
     Route: 065
  2. AMLODIPINE [Suspect]
     Active Substance: AMLODIPINE BESYLATE
     Indication: PRODUCT USED FOR UNKNOWN INDICATION
     Dosage: UNK
     Route: 065
  3. FUROSEMIDE. [Concomitant]
     Active Substance: FUROSEMIDE
     Indication: PRODUCT USED FOR UNKNOWN INDICATION
     Dosage: UNK
     Route: 065
  4. NITROMINT TTS-5 [Concomitant]
     Indication: PRODUCT USED FOR UNKNOWN INDICATION
     Dosage: UNK
     Route: 065
  5. BISOBLOCK [Concomitant]
     Active Substance: BISOPROLOL FUMARATE
     Indication: PRODUCT USED FOR UNKNOWN INDICATION
     Dosage: UNK
     Route: 065
  6. ADEXOR MR [Concomitant]
     Indication: PRODUCT USED FOR UNKNOWN INDICATION
     Dosage: UNK
     Route: 065
  7. DESFERAL [Suspect]
     Active Substance: DEFEROXAMINE MESYLATE
     Indication: PRODUCT USED FOR UNKNOWN INDICATION
     Dosage: UNK
     Route: 065
  8. ROXERA [Concomitant]
     Active Substance: ROSUVASTATIN CALCIUM
     Indication: PRODUCT USED FOR UNKNOWN INDICATION
     Dosage: UNK
     Route: 065
  9. KALDYUM [Concomitant]
     Active Substance: POTASSIUM CHLORIDE
     Indication: PRODUCT USED FOR UNKNOWN INDICATION
     Dosage: UNK
     Route: 065
  10. ASPIRIN PROTECT [Concomitant]
     Active Substance: ASPIRIN
     Indication: PRODUCT USED FOR UNKNOWN INDICATION
     Dosage: UNK
     Route: 065
  11. NOACID [Concomitant]
     Indication: PRODUCT USED FOR UNKNOWN INDICATION
     Dosage: UNK
     Route: 065

REACTIONS (36)
  - Pneumonia [Unknown]
  - Troponin T increased [Unknown]
  - Blood lactate dehydrogenase increased [Unknown]
  - Lymphocyte count increased [Unknown]
  - Monocyte count increased [Unknown]
  - Haematocrit decreased [Unknown]
  - Mitral valve incompetence [Unknown]
  - Acute myocardial infarction [Unknown]
  - Mucosal discolouration [Unknown]
  - White blood cell count decreased [Unknown]
  - Eosinophil count increased [Unknown]
  - Cardiac failure [Unknown]
  - Dyspnoea [Unknown]
  - Peripheral swelling [Unknown]
  - Ejection fraction decreased [Unknown]
  - Aneurysm recanalisation [Unknown]
  - Chest pain [Unknown]
  - Coronary artery occlusion [Unknown]
  - Pulmonary congestion [Unknown]
  - Generalised oedema [Unknown]
  - Alanine aminotransferase increased [Unknown]
  - Gamma-glutamyltransferase increased [Unknown]
  - Neutrophil count decreased [Unknown]
  - Mean platelet volume increased [Unknown]
  - Red blood cell count decreased [Unknown]
  - Hydrothorax [Unknown]
  - Feeling abnormal [Unknown]
  - Skin discolouration [Unknown]
  - C-reactive protein increased [Unknown]
  - Haemoglobin decreased [Unknown]
  - Cough [Unknown]
  - Sinus arrhythmia [Unknown]
  - Respiratory failure [Fatal]
  - Electrocardiogram ST segment depression [Unknown]
  - Anaemia [Unknown]
  - Mean cell volume increased [Unknown]

NARRATIVE: CASE EVENT DATE: 2019
